FAERS Safety Report 22527719 (Version 3)
Quarter: 2024Q4

REPORT INFORMATION
  Report Type: Report from Study
  Country: US (occurrence: US)
  Receive Date: 20230606
  Receipt Date: 20241014
  Transmission Date: 20250115
  Serious: Yes (Other)
  Sender: NOVARTIS
  Company Number: US-002147023-NVSC2023US127617

PATIENT
  Sex: Male

DRUGS (1)
  1. COSENTYX [Suspect]
     Active Substance: SECUKINUMAB
     Indication: Product used for unknown indication
     Dosage: UNK (INJECTION NOS)
     Route: 065

REACTIONS (5)
  - Rheumatoid arthritis [Unknown]
  - Condition aggravated [Unknown]
  - Gait disturbance [Unknown]
  - Psoriasis [Unknown]
  - Product availability issue [Unknown]
